FAERS Safety Report 4570085-0 (Version None)
Quarter: 2005Q1

REPORT INFORMATION
  Report Type: 
  Country: None (occurrence: None)
  Receive Date: 20050131
  Receipt Date: 20050118
  Transmission Date: 20050727
  Serious: Yes (Hospitalization, Other)
  Sender: FDA-Public Use
  Company Number: 2005014985

PATIENT
  Age: 81 Year
  Sex: Male
  Weight: 77.1115 kg

DRUGS (6)
  1. NASALCROM [Suspect]
     Indication: NASAL CONGESTION
     Dosage: ONE SPRAY EACH NOSTRIL BID, NASAL
     Route: 045
     Dates: start: 20040101
  2. METOPROLOL TARTRATE [Concomitant]
  3. FOSINOPRIL SODIUM [Concomitant]
  4. CENTRUM (MINERALS NOS, VITAMINS NOS) [Concomitant]
  5. GLUCOSAMINE (GLUCOSAMINE) [Concomitant]
  6. ACETYLSALICYLIC ACID SRT [Concomitant]

REACTIONS (2)
  - GALLBLADDER OPERATION [None]
  - SKIN CANCER [None]
